FAERS Safety Report 4847918-3 (Version None)
Quarter: 2005Q4

REPORT INFORMATION
  Report Type: 
  Country: None (occurrence: None)
  Receive Date: 20051205
  Receipt Date: 20051205
  Transmission Date: 20060501
  Serious: Yes (Hospitalization)
  Sender: FDA-Public Use
  Company Number: None

PATIENT
  Age: 71 Year
  Sex: Male
  Weight: 54.4316 kg

DRUGS (7)
  1. CISPLATIN [Suspect]
     Indication: BLADDER CANCER
     Dosage: 70MG IV
     Route: 042
     Dates: start: 20051116
  2. GEMCITABINE [Suspect]
     Dosage: 1000MG IV
     Route: 042
     Dates: start: 20051116
  3. GEMCITABINE [Suspect]
     Dosage: 1000MG IV
     Route: 042
     Dates: start: 20051123
  4. BEVACIZUMAB [Suspect]
     Dosage: 15MG IV
     Route: 042
     Dates: start: 20051116
  5. TOPROL-XL [Concomitant]
  6. FLOMAX [Concomitant]
  7. MEGESTROL [Concomitant]

REACTIONS (1)
  - RENAL FAILURE [None]
